FAERS Safety Report 15556684 (Version 1)
Quarter: 2018Q4

REPORT INFORMATION
  Report Type: Spontaneous
  Country: GB (occurrence: GB)
  Receive Date: 20181026
  Receipt Date: 20181026
  Transmission Date: 20190205
  Serious: Yes (Life-Threatening, Hospitalization, Disabling)
  Sender: FDA-Public Use
  Company Number: GB-TEVA-2018-GB-969265

PATIENT
  Age: 61 Year
  Sex: Male
  Weight: 85.72 kg

DRUGS (8)
  1. SPIRONOLACTONE. [Concomitant]
     Active Substance: SPIRONOLACTONE
     Route: 065
  2. ACETYLSALICYLIC ACID [Concomitant]
     Active Substance: ASPIRIN
     Route: 065
  3. AMOXICILLIN. [Suspect]
     Active Substance: AMOXICILLIN
     Indication: PYREXIA
     Dosage: 1500 MILLIGRAM DAILY;
     Route: 048
     Dates: start: 20180820, end: 20180823
  4. MULTIVITAMIN [Concomitant]
     Active Substance: VITAMINS
     Route: 065
  5. FUROSEMIDE. [Concomitant]
     Active Substance: FUROSEMIDE
     Route: 065
  6. ROSUVASTATIN. [Concomitant]
     Active Substance: ROSUVASTATIN
     Route: 065
  7. MAGNESIUM CITRATE. [Concomitant]
     Active Substance: MAGNESIUM CITRATE
     Route: 065
  8. OMEGA-3-ACID ETHYL ESTERS. [Concomitant]
     Active Substance: OMEGA-3-ACID ETHYL ESTERS
     Route: 065

REACTIONS (11)
  - Swollen tongue [Recovered/Resolved with Sequelae]
  - Haematoma [Recovered/Resolved with Sequelae]
  - Hyperhidrosis [Unknown]
  - Dyspnoea [Unknown]
  - Renal pain [Unknown]
  - Tongue haematoma [Recovered/Resolved with Sequelae]
  - International normalised ratio increased [Recovered/Resolved with Sequelae]
  - Hepatic function abnormal [Unknown]
  - Urine abnormality [Unknown]
  - Chromaturia [Unknown]
  - Blood urine present [Recovered/Resolved with Sequelae]

NARRATIVE: CASE EVENT DATE: 20180821
